FAERS Safety Report 9891253 (Version 1)
Quarter: 2014Q1

REPORT INFORMATION
  Report Type: Spontaneous
  Country: IR (occurrence: None)
  Receive Date: 20140210
  Receipt Date: 20140210
  Transmission Date: 20141002
  Serious: Yes (Other)
  Sender: FDA-Public Use
  Company Number: 2014AP000969

PATIENT
  Age: 46 Year
  Sex: Female

DRUGS (3)
  1. ALENDRONIC ACID [Suspect]
     Indication: OSTEOPOROSIS
  2. PREDNISOLONE (PREDNISOLONE) [Suspect]
     Indication: HAEMOLYTIC ANAEMIA
  3. CALCIUM D [Concomitant]

REACTIONS (3)
  - Atypical femur fracture [None]
  - Haemolytic anaemia [None]
  - Fall [None]
